FAERS Safety Report 10652608 (Version 2)
Quarter: 2014Q4

REPORT INFORMATION
  Report Type: Spontaneous
  Country: GB (occurrence: GB)
  Receive Date: 20141215
  Receipt Date: 20141230
  Transmission Date: 20150529
  Serious: Yes (Other)
  Sender: FDA-Public Use
  Company Number: GB-ACTAVIS-2014-26374

PATIENT
  Age: 32 Year
  Sex: Male
  Weight: 95 kg

DRUGS (1)
  1. CETIRIZINE (UNKNOWN) [Suspect]
     Active Substance: CETIRIZINE HYDROCHLORIDE
     Indication: HOUSE DUST ALLERGY
     Dosage: 1 DF, DAILY
     Route: 048
     Dates: start: 20140201, end: 20141122

REACTIONS (5)
  - Social avoidant behaviour [Not Recovered/Not Resolved]
  - Apathy [Not Recovered/Not Resolved]
  - Depressed mood [Not Recovered/Not Resolved]
  - Eating disorder [Not Recovered/Not Resolved]
  - Hypersomnia [Not Recovered/Not Resolved]

NARRATIVE: CASE EVENT DATE: 20140301
